FAERS Safety Report 5325340-3 (Version None)
Quarter: 2007Q2

REPORT INFORMATION
  Report Type: 
  Country: None (occurrence: None)
  Receive Date: 20070515
  Receipt Date: 20070423
  Transmission Date: 20071010
  Serious: Yes (Other)
  Sender: FDA-Public Use
  Company Number: US-RB-3739-2006

PATIENT
  Age: 28 Year
  Sex: Female
  Weight: 76.95 kg

DRUGS (11)
  1. SUBUTEX [Suspect]
     Indication: DRUG DEPENDENCE
     Dosage: COMPOUNDED IN HOSPITAL PHARMACY BY USING CRUSHED SUBUTEX. PATIENT ON 0.1MG/WEEK REDUCTION REGIME
     Route: 060
     Dates: start: 20060711
  2. SUBUTEX [Suspect]
     Indication: DRUG DEPENDENCE
     Route: 060
     Dates: start: 20050201, end: 20060706
  3. SUBUTEX [Suspect]
     Route: 060
     Dates: start: 20060707, end: 20061105
  4. SUBUTEX [Suspect]
     Route: 060
     Dates: start: 20061106, end: 20070101
  5. SUBOXONE [Suspect]
     Indication: DRUG DEPENDENCE
     Dosage: WAS ON VERY GRADUAL REDUCTION REGIME
     Route: 060
     Dates: start: 20050114, end: 20060710
  6. SUBOXONE [Suspect]
     Indication: DRUG DEPENDENCE
     Route: 060
     Dates: start: 20041201, end: 20050201
  7. SUBOXONE [Suspect]
     Route: 060
     Dates: start: 20070101
  8. PREGNANCY MULTIVITAMINS [Concomitant]
     Indication: PRENATAL CARE
  9. INDERAL LA [Concomitant]
     Indication: MIGRAINE
     Route: 048
     Dates: start: 20050114
  10. ALBUTEROL [Concomitant]
  11. CONTRACEPTIVE [Concomitant]
     Route: 048
     Dates: end: 20060701

REACTIONS (4)
  - ABORTION INDUCED [None]
  - DRUG EXPOSURE DURING PREGNANCY [None]
  - DRUG WITHDRAWAL SYNDROME [None]
  - TURNER'S SYNDROME [None]
